FAERS Safety Report 5197788-1 (Version None)
Quarter: 2006Q4

REPORT INFORMATION
  Report Type: 
  Country: None (occurrence: None)
  Receive Date: 20061228
  Receipt Date: 20061211
  Transmission Date: 20070319
  Serious: Yes (Life-Threatening, Hospitalization, Other)
  Sender: FDA-Public Use
  Company Number: AND_0497_2006

PATIENT
  Age: 67 Year
  Sex: Female

DRUGS (3)
  1. MIRTAZAPINE [Suspect]
     Indication: DRUG USE FOR UNKNOWN INDICATION
     Dosage: 15 MG QHS PO
     Route: 048
  2. CITALOPRAM HYDROBROMIDE [Suspect]
     Indication: DRUG USE FOR UNKNOWN INDICATION
     Dosage: 20 MG QDAY PO
     Route: 048
  3. LEVODOPA [Concomitant]

REACTIONS (9)
  - ABDOMINAL PAIN [None]
  - AGITATION [None]
  - BRADYKINESIA [None]
  - HYPONATRAEMIA [None]
  - INAPPROPRIATE ANTIDIURETIC HORMONE SECRETION [None]
  - NAUSEA [None]
  - ORAL INTAKE REDUCED [None]
  - TREMOR [None]
  - VOMITING [None]
